FAERS Safety Report 15297244 (Version 1)
Quarter: 2018Q3

REPORT INFORMATION
  Report Type: Spontaneous
  Country: CN (occurrence: CN)
  Receive Date: 20180820
  Receipt Date: 20180820
  Transmission Date: 20181010
  Serious: Yes (Death)
  Sender: FDA-Public Use
  Company Number: CN-ALLERGAN-1840344US

PATIENT
  Age: 4 Month
  Sex: Male
  Weight: 8.5 kg

DRUGS (6)
  1. GLUTATHIONE [Concomitant]
     Active Substance: GLUTATHIONE
  2. GLYCYRRHIZINATE POTASSIUM [Concomitant]
     Active Substance: GLYCYRRHIZIN
  3. URSODEOXYCHOLIC ACID UNK [Suspect]
     Active Substance: URSODIOL
     Indication: NEONATAL CHOLESTASIS
     Dosage: UNK
     Route: 065
  4. PIPERACILLIN SODIUM [Concomitant]
     Active Substance: PIPERACILLIN SODIUM
     Indication: PNEUMONIA
  5. GANCICLOVIR. [Concomitant]
     Active Substance: GANCICLOVIR
     Indication: CYTOMEGALOVIRUS TEST POSITIVE
  6. PREDNISOLONE. [Concomitant]
     Active Substance: PREDNISOLONE

REACTIONS (3)
  - Hepatic failure [Fatal]
  - Condition aggravated [Unknown]
  - Off label use [Unknown]
